FAERS Safety Report 14047443 (Version 4)
Quarter: 2018Q4

REPORT INFORMATION
  Report Type: Spontaneous
  Country: US (occurrence: US)
  Receive Date: 20171005
  Receipt Date: 20181023
  Transmission Date: 20190204
  Serious: Yes (Other)
  Sender: FDA-Public Use
  Company Number: US-ASTRAZENECA-2017SE99051

PATIENT
  Age: 7 Year
  Sex: Male
  Weight: 22.7 kg

DRUGS (34)
  1. LANSOPRAZOLE. [Suspect]
     Active Substance: LANSOPRAZOLE
     Route: 065
  2. AUGMENTIN ES [Concomitant]
     Dosage: AMOXICILLIN-POT CLAVULANATE
     Route: 048
     Dates: start: 20141208, end: 20160202
  3. PREDNISONE. [Concomitant]
     Active Substance: PREDNISONE
     Dosage: 15MG/15ML
     Dates: start: 20140712
  4. EPOGEN [Concomitant]
     Active Substance: ERYTHROPOIETIN
  5. NAPROXEN. [Concomitant]
     Active Substance: NAPROXEN
  6. NALOXONE [Concomitant]
     Active Substance: NALOXONE
  7. LASIX [Concomitant]
     Active Substance: FUROSEMIDE
  8. AUGMENTIN ES [Concomitant]
     Route: 048
     Dates: start: 20150218, end: 20160202
  9. EPINEPHRINE. [Concomitant]
     Active Substance: EPINEPHRINE
  10. LABETALOL [Concomitant]
     Active Substance: LABETALOL\LABETALOL HYDROCHLORIDE
     Dosage: 90.0MG UNKNOWN
  11. RITONAVIR. [Concomitant]
     Active Substance: RITONAVIR
  12. TETRACYCLINE [Concomitant]
     Active Substance: TETRACYCLINE
  13. ERYTHROMYCIN. [Concomitant]
     Active Substance: ERYTHROMYCIN
  14. AMIODARONE [Concomitant]
     Active Substance: AMIODARONE
  15. NEXIUM [Suspect]
     Active Substance: ESOMEPRAZOLE MAGNESIUM
     Indication: GASTROOESOPHAGEAL REFLUX DISEASE
     Dosage: 20.0MG UNKNOWN
     Route: 048
     Dates: start: 2013, end: 2014
  16. AZITHROMYCIN ANHYDROUS. [Concomitant]
     Active Substance: AZITHROMYCIN ANHYDROUS
     Dosage: 200ML/5ML
     Dates: start: 20140712
  17. PREDNISONE. [Concomitant]
     Active Substance: PREDNISONE
  18. LOVENOX [Concomitant]
     Active Substance: ENOXAPARIN SODIUM
  19. DIAZEPAM. [Concomitant]
     Active Substance: DIAZEPAM
  20. PHENYTOIN. [Concomitant]
     Active Substance: PHENYTOIN
  21. NEXIUM [Suspect]
     Active Substance: ESOMEPRAZOLE MAGNESIUM
     Indication: GASTROOESOPHAGEAL REFLUX DISEASE
     Dosage: 20.0MG UNKNOWN
     Route: 048
     Dates: start: 2013
  22. PRILOSEC [Suspect]
     Active Substance: OMEPRAZOLE MAGNESIUM
     Route: 048
  23. A/B OTIC [Concomitant]
     Dosage: 2 DROPS
     Dates: start: 20141202, end: 20160202
  24. BUMETANIDE. [Concomitant]
     Active Substance: BUMETANIDE
     Route: 048
  25. ALBUTEROL. [Concomitant]
     Active Substance: ALBUTEROL
     Dates: start: 20140712
  26. IBUPROFEN. [Concomitant]
     Active Substance: IBUPROFEN
  27. DIGOXIN. [Concomitant]
     Active Substance: DIGOXIN
  28. FLUMAZENIL. [Concomitant]
     Active Substance: FLUMAZENIL
  29. NEXIUM [Suspect]
     Active Substance: ESOMEPRAZOLE MAGNESIUM
     Indication: GASTROOESOPHAGEAL REFLUX DISEASE
     Dosage: 20.0MG UNKNOWN
     Route: 048
     Dates: start: 20130116
  30. NEXIUM 24HR [Suspect]
     Active Substance: ESOMEPRAZOLE MAGNESIUM
     Route: 048
  31. AMLODIPINE [Concomitant]
     Active Substance: AMLODIPINE BESYLATE
     Route: 048
  32. METOLAZONE. [Concomitant]
     Active Substance: METOLAZONE
     Route: 048
  33. ASPIRIN. [Concomitant]
     Active Substance: ASPIRIN
  34. PNEUMOVAX 23 [Concomitant]
     Active Substance: PNEUMOCOCCAL VACCINE, POLYVALENT 23
     Dates: start: 20151013

REACTIONS (6)
  - Renal failure [Unknown]
  - Acute kidney injury [Unknown]
  - Nephrogenic anaemia [Unknown]
  - Chronic kidney disease [Unknown]
  - End stage renal disease [Not Recovered/Not Resolved]
  - Nephrotic syndrome [Unknown]

NARRATIVE: CASE EVENT DATE: 20150826
